FAERS Safety Report 7618857-X (Version None)
Quarter: 2011Q3

REPORT INFORMATION
  Report Type: 
  Country: None (occurrence: None)
  Receive Date: 20110718
  Receipt Date: 20110711
  Transmission Date: 20111222
  Serious: Yes (Other)
  Sender: FDA-Public Use
  Company Number: GB-B.I. PHARMACEUTICALS,INC./RIDGEFIELD-2011-UK-00484UK

PATIENT
  Sex: Female

DRUGS (6)
  1. PRAMIPEXOLE DIHYDROCHLORIDE [Suspect]
     Indication: PARKINSON'S DISEASE
     Dosage: 1 MG
     Route: 048
     Dates: start: 20110301, end: 20110401
  2. CLOPIDGREL [Concomitant]
     Dosage: 75 MG
     Route: 048
  3. CERTIZINE [Concomitant]
     Dosage: 10 MG
  4. SOLIFENCIN [Concomitant]
     Dosage: 5 MG
     Route: 048
  5. BENDROFLUMETHIAZIDE [Concomitant]
     Dosage: 2.5 ANZ
  6. SIMVASTATIN [Concomitant]
     Dosage: 40 MG

REACTIONS (3)
  - RETINAL TEAR [None]
  - RASH [None]
  - VISION BLURRED [None]
